FAERS Safety Report 5988762-3 (Version None)
Quarter: 2008Q4

REPORT INFORMATION
  Report Type: 
  Country: None (occurrence: None)
  Receive Date: 20081210
  Receipt Date: 20081204
  Transmission Date: 20090506
  Serious: Yes (Other)
  Sender: FDA-Public Use
  Company Number: PHHY2008CA30015

PATIENT
  Sex: Female

DRUGS (13)
  1. RASILEZ [Suspect]
     Indication: HYPERTENSION
     Dosage: 150 MG, QD
     Route: 048
     Dates: start: 20081110
  2. COUMADIN [Concomitant]
     Dosage: 2.5 MG, QD
  3. RISPERDAL [Concomitant]
     Dosage: 0.25 MG, QD
  4. METHYLDOPA [Concomitant]
     Dosage: 500 MG, TID
  5. METFORMIN HCL [Concomitant]
     Dosage: 500 MG, QD4SDO
  6. LISINOPRIL [Concomitant]
     Dosage: 20 MG, QD
  7. LABETALOL HCL [Concomitant]
     Dosage: 200 MG, BID
  8. LISINOPRIL AND HYDROCHLOROTHIAZIDE [Concomitant]
  9. DIAMICRON MR [Concomitant]
     Dosage: 4 DF, QD
  10. LIPITOR [Concomitant]
     Dosage: 10 MG, QD
  11. PENNSAID [Concomitant]
     Dosage: APPLY 40 GTTS
  12. FERROUS SULFATE TAB [Concomitant]
     Dosage: 300 MG, QD
  13. EMPRACET [Concomitant]
     Dosage: 1 DF, Q4H, PRN

REACTIONS (1)
  - INTERNATIONAL NORMALISED RATIO DECREASED [None]
